FAERS Safety Report 4365692-4 (Version None)
Quarter: 2004Q2

REPORT INFORMATION
  Report Type: 
  Country: None (occurrence: None)
  Receive Date: 20040527
  Receipt Date: 20040422
  Transmission Date: 20050107
  Serious: Yes (Hospitalization, Other)
  Sender: FDA-Public Use
  Company Number: PHBS2004BE05797

PATIENT
  Age: 60 Year

DRUGS (9)
  1. ZOMETA [Suspect]
     Indication: MULTIPLE MYELOMA
     Route: 065
     Dates: start: 20021001, end: 20040501
  2. AREDIA [Suspect]
     Indication: MULTIPLE MYELOMA
     Route: 065
     Dates: start: 19950101, end: 20021001
  3. AREDIA [Suspect]
     Dates: start: 20040504
  4. MELPHALAN [Concomitant]
     Route: 065
     Dates: start: 20031201
  5. MEDROL [Concomitant]
     Dates: start: 19980701
  6. INTERFERON [Concomitant]
     Dates: start: 19990101
  7. THALIDOMIDE [Concomitant]
     Dates: start: 20020101, end: 20030401
  8. DEXAMETHASONE [Concomitant]
     Dates: start: 20020101, end: 20030401
  9. VED [Concomitant]
     Dates: start: 20030801

REACTIONS (12)
  - BONE DISORDER [None]
  - INFECTION [None]
  - MALIGNANT NEOPLASM PROGRESSION [None]
  - MUCOSAL INFLAMMATION [None]
  - OSTEOMYELITIS [None]
  - OSTEONECROSIS [None]
  - PAIN IN JAW [None]
  - PRIMARY SEQUESTRUM [None]
  - SALIVARY GLAND RESECTION [None]
  - SKIN FISSURES [None]
  - STEM CELL TRANSPLANT [None]
  - SWELLING [None]
